FAERS Safety Report 9414637 (Version 2)
Quarter: 2013Q3

REPORT INFORMATION
  Report Type: Spontaneous
  Country: US (occurrence: US)
  Receive Date: 20130723
  Receipt Date: 20130910
  Transmission Date: 20140515
  Serious: Yes (Death)
  Sender: FDA-Public Use
  Company Number: US-CELGENEUS-163-21880-13072654

PATIENT
  Sex: Male

DRUGS (1)
  1. REVLIMID [Suspect]
     Indication: LYMPHOMA
     Dosage: 25 MILLIGRAM
     Route: 048
     Dates: start: 201305, end: 2013

REACTIONS (2)
  - Death [Fatal]
  - Renal disorder [Unknown]
